FAERS Safety Report 25002159 (Version 1)
Quarter: 2025Q1

REPORT INFORMATION
  Report Type: Spontaneous
  Country: US (occurrence: US)
  Receive Date: 20250224
  Receipt Date: 20250224
  Transmission Date: 20250408
  Serious: No
  Sender: BRISTOL-MYERS SQUIBB COMPANY
  Company Number: US-BRISTOL-MYERS SQUIBB COMPANY-2025-021503

PATIENT
  Age: 69 Year
  Sex: Male

DRUGS (2)
  1. REVLIMID [Suspect]
     Active Substance: LENALIDOMIDE
     Indication: Plasma cell myeloma
     Dosage: PATIENT TAKE ONE 2.5MG AND ONE 5MG CAPSULE FOR A TOTAL DAILY DOSE OF 7.5MG.
     Route: 048
     Dates: start: 201801
  2. REVLIMID [Suspect]
     Active Substance: LENALIDOMIDE
     Dosage: PATIENT TAKE ONE 2.5MG AND ONE 5MG CAPSULE FOR A TOTAL DAILY DOSE OF 7.5MG.?STRENGTH: 5MG.
     Route: 048
     Dates: start: 201801

REACTIONS (1)
  - Laboratory test abnormal [Unknown]
